FAERS Safety Report 7706999-X (Version None)
Quarter: 2011Q3

REPORT INFORMATION
  Report Type: 
  Country: None (occurrence: None)
  Receive Date: 20110824
  Receipt Date: 20110810
  Transmission Date: 20111222
  Serious: Yes (Hospitalization, Other)
  Sender: FDA-Public Use
  Company Number: CA-ELI_LILLY_AND_COMPANY-CA201108003269

PATIENT
  Sex: Male

DRUGS (12)
  1. ZYPREXA [Suspect]
     Dosage: 15 MG, QD
  2. IMOVANE [Concomitant]
  3. ATIVAN [Concomitant]
  4. LAMICTAL [Concomitant]
  5. ZYPREXA [Suspect]
     Indication: BIPOLAR DISORDER
     Dosage: 10 MG, QD
     Dates: start: 20030811, end: 20040416
  6. LITHIUM CARBONATE [Concomitant]
  7. CELEXA [Concomitant]
  8. HALDOL [Concomitant]
  9. RESTORIL [Concomitant]
  10. ASPIRIN [Concomitant]
  11. MIDAZOLAM HCL [Concomitant]
  12. WELLBUTRIN [Concomitant]

REACTIONS (13)
  - DIABETIC KETOACIDOSIS [None]
  - DIABETES MELLITUS [None]
  - ATELECTASIS [None]
  - HYPERNATRAEMIA [None]
  - DYSLIPIDAEMIA [None]
  - ALTERED STATE OF CONSCIOUSNESS [None]
  - HYPERGLYCAEMIA [None]
  - COMA [None]
  - STREPTOCOCCUS TEST POSITIVE [None]
  - RESPIRATORY FAILURE [None]
  - CARDIOMEGALY [None]
  - PNEUMONIA [None]
  - TACHYCARDIA [None]
